FAERS Safety Report 10869035 (Version 1)
Quarter: 2015Q1

REPORT INFORMATION
  Report Type: Spontaneous
  Country: CN (occurrence: CN)
  Receive Date: 20150225
  Receipt Date: 20150225
  Transmission Date: 20150721
  Serious: Yes (Other)
  Sender: FDA-Public Use
  Company Number: ALCN2015CN001295

PATIENT
  Age: 45 Year
  Sex: Female

DRUGS (1)
  1. MOXIFLOXACIN [Suspect]
     Active Substance: MOXIFLOXACIN
     Indication: CORNEAL OEDEMA
     Dosage: 1 DF, ONCE/SINGLE
     Route: 065

REACTIONS (6)
  - Endophthalmitis [Recovered/Resolved]
  - Corneal infiltrates [Recovered/Resolved]
  - Corneal abscess [Recovered/Resolved]
  - Glaucoma [Unknown]
  - Off label use [Unknown]
  - Corneal perforation [Recovered/Resolved]
